FAERS Safety Report 8569511-1 (Version None)
Quarter: 2012Q3

REPORT INFORMATION
  Report Type: 
  Country: None (occurrence: None)
  Receive Date: 20120803
  Receipt Date: 20120302
  Transmission Date: 20120928
  Serious: No
  Sender: FDA-Public Use
  Company Number: US-ABBOTT-12P-163-0910919-00

PATIENT
  Sex: Male
  Weight: 104.42 kg

DRUGS (5)
  1. NIASPAN [Suspect]
     Indication: BLOOD TRIGLYCERIDES ABNORMAL
     Dosage: CHANGED TO 1 TAB
  2. SIMVASTATIN [Concomitant]
     Indication: PRODUCT USED FOR UNKNOWN INDICATION
  3. BENICAR [Concomitant]
     Indication: PRODUCT USED FOR UNKNOWN INDICATION
  4. NIASPAN [Suspect]
     Indication: HIGH DENSITY LIPOPROTEIN DECREASED
     Dosage: TAKING 2 TABS
  5. CARDIZEM [Concomitant]
     Indication: PRODUCT USED FOR UNKNOWN INDICATION

REACTIONS (1)
  - FLUSHING [None]
